FAERS Safety Report 14575685 (Version 1)
Quarter: 2018Q1

REPORT INFORMATION
  Report Type: Spontaneous
  Country: FR (occurrence: FR)
  Receive Date: 20180227
  Receipt Date: 20180227
  Transmission Date: 20180509
  Serious: Yes (Other)
  Sender: FDA-Public Use
  Company Number: FR-ROCHE-2079911

PATIENT
  Age: 11 Year
  Sex: Female
  Weight: 38.8 kg

DRUGS (1)
  1. MABTHERA [Suspect]
     Active Substance: RITUXIMAB
     Indication: AUTOIMMUNE HAEMOLYTIC ANAEMIA
     Route: 042
     Dates: start: 20140325, end: 20140418

REACTIONS (2)
  - Lymphopenia [Recovered/Resolved]
  - Condition aggravated [Recovered/Resolved]
